FAERS Safety Report 9714123 (Version 2)
Quarter: 2013Q4

REPORT INFORMATION
  Report Type: Spontaneous
  Country: US (occurrence: US)
  Receive Date: 20131126
  Receipt Date: 20131126
  Transmission Date: 20140711
  Serious: No
  Sender: FDA-Public Use
  Company Number: US-GILEAD-2008-0018796

PATIENT
  Sex: Female
  Weight: 70.31 kg

DRUGS (8)
  1. LETAIRIS [Suspect]
     Indication: PULMONARY ARTERIAL HYPERTENSION
     Route: 048
     Dates: start: 20081017
  2. SPIRONOLACTONE [Concomitant]
     Route: 048
  3. REVATIO [Concomitant]
     Route: 048
  4. DIOVAN [Concomitant]
     Route: 048
  5. DIGOXIN [Concomitant]
     Route: 048
  6. MULTIVITAMIN [Concomitant]
     Route: 048
  7. VITAMIN D [Concomitant]
  8. FERROUS SULFATE [Concomitant]
     Route: 048

REACTIONS (1)
  - Painful respiration [Not Recovered/Not Resolved]
